FAERS Safety Report 19948959 (Version 1)
Quarter: 2021Q4

REPORT INFORMATION
  Report Type: Spontaneous
  Country: US (occurrence: US)
  Receive Date: 20211008
  Receipt Date: 20211008
  Transmission Date: 20220303
  Serious: No
  Sender: FDA-Public Use
  Company Number: None

PATIENT
  Sex: Male

DRUGS (2)
  1. CAPECITABINE [Suspect]
     Active Substance: CAPECITABINE
     Indication: Rectal cancer
     Route: 048
  2. CAPECITABINE [Suspect]
     Active Substance: CAPECITABINE
     Dosage: ???OTHER FREQUENCY : UD
     Dates: start: 20210901

REACTIONS (7)
  - Vomiting [None]
  - Diarrhoea [None]
  - Nausea [None]
  - Gastrointestinal tract irritation [None]
  - Eructation [None]
  - Gastrooesophageal reflux disease [None]
  - Discomfort [None]
